FAERS Safety Report 8168079-1 (Version None)
Quarter: 2012Q1

REPORT INFORMATION
  Report Type: 
  Country: None (occurrence: None)
  Receive Date: 20120227
  Receipt Date: 20120215
  Transmission Date: 20120608
  Serious: Yes (Disabling)
  Sender: FDA-Public Use
  Company Number: PHHY2010JP59737

PATIENT
  Sex: Female

DRUGS (7)
  1. TASIGNA [Suspect]
     Indication: CHRONIC MYELOID LEUKAEMIA
     Dosage: 800 MG, DAILY
     Route: 048
     Dates: start: 20100405, end: 20100620
  2. DIOVAN [Concomitant]
     Dosage: 80 MG, UNK
     Route: 048
     Dates: start: 20100405
  3. GLUCOBAY [Concomitant]
     Dosage: 300 MG, UNK
     Route: 048
  4. AMARYL [Concomitant]
     Dosage: 1 MG, UNK
     Dates: start: 20100405
  5. NORVASC [Concomitant]
     Dosage: 5 MG, UNK
     Route: 048
     Dates: start: 20100405
  6. TASIGNA [Suspect]
     Dosage: 400 MG, UNK
     Route: 048
     Dates: start: 20100621, end: 20100704
  7. LENDORMIN [Concomitant]
     Indication: CHRONIC MYELOID LEUKAEMIA
     Dosage: 0.25 MG, UNK
     Route: 048
     Dates: start: 20100405, end: 20100101

REACTIONS (2)
  - ACUTE MYOCARDIAL INFARCTION [None]
  - HYPERGLYCAEMIA [None]
